FAERS Safety Report 9347949 (Version 1)
Quarter: 2013Q2

REPORT INFORMATION
  Report Type: Spontaneous
  Country: US (occurrence: None)
  Receive Date: 20130612
  Receipt Date: 20130612
  Transmission Date: 20140414
  Serious: No
  Sender: FDA-Public Use
  Company Number: None

PATIENT
  Age: 60 Year
  Sex: Female

DRUGS (1)
  1. ZOLPIDEM [Suspect]
     Dosage: 1 TABLET ONCE NIGHTLY
     Route: 048
     Dates: start: 20130503, end: 20130611

REACTIONS (1)
  - Drug effect decreased [None]
